FAERS Safety Report 7731408-4 (Version None)
Quarter: 2011Q3

REPORT INFORMATION
  Report Type: 
  Country: None (occurrence: None)
  Receive Date: 20110906
  Receipt Date: 20110527
  Transmission Date: 20111222
  Serious: No
  Sender: FDA-Public Use
  Company Number: US-AMGEN-USASP2011027655

PATIENT
  Sex: Female

DRUGS (1)
  1. PROLIA [Suspect]
     Indication: OSTEOPOROSIS POSTMENOPAUSAL
     Dosage: UNK

REACTIONS (7)
  - WEIGHT DECREASED [None]
  - BACK PAIN [None]
  - RASH [None]
  - TOOTHACHE [None]
  - TOOTH FRACTURE [None]
  - ROAD TRAFFIC ACCIDENT [None]
  - PAIN IN JAW [None]
